FAERS Safety Report 7437909-0 (Version None)
Quarter: 2011Q2

REPORT INFORMATION
  Report Type: 
  Country: None (occurrence: None)
  Receive Date: 20110426
  Receipt Date: 20110418
  Transmission Date: 20111010
  Serious: Yes (Death)
  Sender: FDA-Public Use
  Company Number: B0715084A

PATIENT
  Sex: Female

DRUGS (9)
  1. ROCALTROL [Concomitant]
     Dosage: .25MCG PER DAY
  2. ALLOPURINOL [Concomitant]
     Dosage: 300MG PER DAY
  3. DELTACORTENE [Suspect]
     Dosage: 25MG PER DAY
     Route: 042
     Dates: start: 20091023, end: 20091026
  4. AREDIA [Concomitant]
     Dosage: 60MG PER DAY
  5. NEORECORMON [Concomitant]
     Dosage: 30000U PER DAY
  6. UNKNOWN DRUG [Concomitant]
     Dosage: 20MG PER DAY
  7. PLASIL [Concomitant]
     Dosage: 10MG PER DAY
  8. ALKERAN [Suspect]
     Indication: MULTIPLE MYELOMA
     Dosage: 6MG PER DAY
     Route: 048
     Dates: start: 20091022, end: 20091026
  9. CALCIUM CARBONATE [Concomitant]
     Dosage: 2G PER DAY

REACTIONS (3)
  - FALL [None]
  - CYTOMEGALOVIRUS INFECTION [None]
  - HEAD INJURY [None]
